FAERS Safety Report 4430558-8 (Version None)
Quarter: 2004Q3

REPORT INFORMATION
  Report Type: 
  Country: None (occurrence: None)
  Receive Date: 20040818
  Receipt Date: 20040810
  Transmission Date: 20050211
  Serious: Yes (Life-Threatening, Hospitalization, Congenital Anomaly)
  Sender: FDA-Public Use
  Company Number: 2004-08-0370

PATIENT
  Age: 3 Month
  Sex: Male

DRUGS (3)
  1. TRILAFON [Suspect]
     Indication: DEPRESSION
     Dosage: 25 MG/2 MG
  2. PROZAC [Suspect]
     Indication: DEPRESSION
     Dosage: 20 MG BID
  3. VALIUM [Suspect]
     Indication: DEPRESSION
     Dosage: 5 MG BID

REACTIONS (4)
  - DRUG EXPOSURE DURING PREGNANCY [None]
  - FOETAL GROWTH RETARDATION [None]
  - NEONATAL DIABETES MELLITUS [None]
  - PREMATURE BABY [None]
